FAERS Safety Report 11191096 (Version 1)
Quarter: 2015Q2

REPORT INFORMATION
  Report Type: Spontaneous
  Country: SE (occurrence: SE)
  Receive Date: 20150615
  Receipt Date: 20150615
  Transmission Date: 20150821
  Serious: Yes (Hospitalization)
  Sender: FDA-Public Use
  Company Number: SE-ABBVIE-15P-150-1405712-00

PATIENT
  Age: 24 Year
  Sex: Female

DRUGS (1)
  1. VALPROIC ACID. [Suspect]
     Active Substance: VALPROIC ACID
     Indication: PRODUCT USED FOR UNKNOWN INDICATION
     Dosage: APPROXIMATELY 100 TABLETS
     Route: 065

REACTIONS (6)
  - Overdose [Recovered/Resolved]
  - Psychotic disorder [Recovered/Resolved]
  - Seizure [Recovered/Resolved]
  - Hypotension [Recovered/Resolved]
  - Loss of consciousness [Recovered/Resolved]
  - Ammonia increased [Recovered/Resolved]
